FAERS Safety Report 7124316-3 (Version None)
Quarter: 2010Q4

REPORT INFORMATION
  Report Type: 
  Country: None (occurrence: None)
  Receive Date: 20101126
  Receipt Date: 20101117
  Transmission Date: 20110411
  Serious: Yes (Other)
  Sender: FDA-Public Use
  Company Number: PHHY2010US78851

PATIENT
  Sex: Female

DRUGS (1)
  1. MYFORTIC [Suspect]
     Dosage: 360 MG, BID
     Route: 048

REACTIONS (4)
  - BLOOD DISORDER [None]
  - CONVULSION [None]
  - RENAL DISORDER [None]
  - SYSTEMIC LUPUS ERYTHEMATOSUS [None]
